FAERS Safety Report 18242026 (Version 1)
Quarter: 2020Q3

REPORT INFORMATION
  Report Type: Spontaneous
  Country: US (occurrence: US)
  Receive Date: 20200908
  Receipt Date: 20200908
  Transmission Date: 20201103
  Serious: Yes (Other)
  Sender: FDA-Public Use
  Company Number: US-BAYER-2020-187784

PATIENT
  Age: 8 Decade
  Sex: Female

DRUGS (1)
  1. MIRENA [Suspect]
     Active Substance: LEVONORGESTREL
     Indication: NEOPLASM PROPHYLAXIS
     Dosage: 20 ?G PER DAY CONTINUOUSLY
     Route: 015

REACTIONS (4)
  - Device use issue [None]
  - Genital haemorrhage [None]
  - Vaginal haemorrhage [None]
  - Off label use of device [None]

NARRATIVE: CASE EVENT DATE: 20200903
